FAERS Safety Report 9511670 (Version 1)
Quarter: 2013Q1

REPORT INFORMATION
  Report Type: Spontaneous
  Country: US (occurrence: None)
  Receive Date: 20130305
  Receipt Date: 20130305
  Transmission Date: 20140127
  Serious: Yes (Other)
  Sender: FDA-Public Use
  Company Number: 163-21880-12103431

PATIENT
  Age: 81 Year
  Sex: Female
  Weight: 92.99 kg

DRUGS (12)
  1. REVLIMID [Suspect]
     Indication: PLASMA CELL MYELOMA
     Dosage: 25 MG, 21 IN 21 D, PO
     Route: 048
     Dates: start: 20120803
  2. ADVAIR DISKUS (SERETIDE MITE) [Concomitant]
  3. ALBUTEROL (SALBUTAMOL) [Concomitant]
  4. BENICAR (OLMESARTAN MEDOXOMIL) [Concomitant]
  5. CITRUCEL (METHYLCELLULOSE) [Concomitant]
  6. CARDIZEM (DILTIAZEM HYDROCHLORIDE) [Concomitant]
  7. FISH OIL OMEGA-3 (FISH OIL) [Concomitant]
  8. SINGULAIR [Concomitant]
  9. TRICOR (FENOFIBRATE) [Concomitant]
  10. VITAMIN B6 (PYRIDOXINE HYDROCHLORIDE) [Concomitant]
  11. VITAMIN D (ERGOCALCIFEROL) [Concomitant]
  12. DEXAMETHASONE (DEXAMETHASONE) [Concomitant]

REACTIONS (2)
  - Paraesthesia [None]
  - Tremor [None]
